FAERS Safety Report 16171840 (Version 1)
Quarter: 2019Q2

REPORT INFORMATION
  Report Type: Report from Study
  Country: None (occurrence: US)
  Receive Date: 20190408
  Receipt Date: 20190408
  Transmission Date: 20190711
  Serious: Yes (Other)
  Sender: FDA-Public Use
  Company Number: US-ABBVIE-19S-163-2731934-00

PATIENT
  Age: 71 Year
  Sex: Male

DRUGS (1)
  1. CREON [Suspect]
     Active Substance: PANCRELIPASE AMYLASE\PANCRELIPASE LIPASE\PANCRELIPASE PROTEASE
     Indication: PRODUCT USED FOR UNKNOWN INDICATION
     Route: 048

REACTIONS (8)
  - Adenocarcinoma pancreas [Unknown]
  - Pneumonitis [Recovering/Resolving]
  - Pancreatic mass [Recovering/Resolving]
  - Carotid artery bypass [Unknown]
  - Abdominal lymphadenopathy [Recovering/Resolving]
  - Fatigue [Unknown]
  - Abdominal pain [Unknown]
  - Central venous catheterisation [Unknown]

NARRATIVE: CASE EVENT DATE: 1997
